FAERS Safety Report 18668662 (Version 1)
Quarter: 2020Q4

REPORT INFORMATION
  Report Type: Spontaneous
  Country: JP (occurrence: JP)
  Receive Date: 20201228
  Receipt Date: 20201228
  Transmission Date: 20210114
  Serious: Yes (Other)
  Sender: FDA-Public Use
  Company Number: JP-GLAXOSMITHKLINE-JP2020254296

PATIENT
  Age: 72 Year
  Sex: Male

DRUGS (9)
  1. ARTIST TABLETS [Concomitant]
     Active Substance: CARVEDILOL
     Dosage: 10 MG, QD
  2. NEOJODIN [Concomitant]
     Dosage: 30 ML
  3. DETANTOL R [Concomitant]
     Active Substance: BUNAZOSIN HYDROCHLORIDE
     Dosage: 3 MG, QD
  4. NORVASC TABLETS [Concomitant]
     Dosage: 5 MG, QD
  5. RIVOTRIL [Concomitant]
     Active Substance: CLONAZEPAM
     Dosage: 0.5 MG, BID
  6. SERETIDE [Suspect]
     Active Substance: FLUTICASONE PROPIONATE\SALMETEROL XINAFOATE
     Indication: ASTHMA
     Dosage: UNK, BID
     Route: 055
  7. ZESULAN [Concomitant]
     Active Substance: MEQUITAZINE
     Indication: RHINITIS ALLERGIC
     Dosage: 3 MG, BID, IN THE MORNING AND IN THE EVENING
  8. MEVALOTIN TABLETS [Concomitant]
     Dosage: 5 MG, QD, IN THE MORNING
  9. DIOVAN [Concomitant]
     Active Substance: VALSARTAN
     Dosage: 40 MG, QD

REACTIONS (1)
  - Lung carcinoma cell type unspecified stage I [Recovered/Resolved]
